FAERS Safety Report 10277103 (Version 3)
Quarter: 2014Q3

REPORT INFORMATION
  Report Type: Spontaneous
  Country: IT (occurrence: IT)
  Receive Date: 20140703
  Receipt Date: 20140905
  Transmission Date: 20150326
  Serious: Yes (Hospitalization)
  Sender: FDA-Public Use
  Company Number: IT-NOVOPROD-414555

PATIENT
  Age: 80 Year
  Sex: Male

DRUGS (7)
  1. NOVOMIX 30 [Suspect]
     Active Substance: INSULIN ASPART
     Indication: TYPE 1 DIABETES MELLITUS
     Dosage: 30 IU, QD
     Route: 058
     Dates: start: 20070101
  2. CARDIOASPIRIN [Concomitant]
     Active Substance: ASPIRIN
     Dosage: 1U
     Route: 048
  3. MINITRAN                           /00003201/ [Concomitant]
  4. LANSOPRAZOLO [Concomitant]
     Active Substance: LANSOPRAZOLE
  5. VASEXTEN [Concomitant]
     Active Substance: BARNIDIPINE
  6. CARVEDILOLO [Concomitant]
     Active Substance: CARVEDILOL
     Dosage: UNK
     Route: 065
  7. CRESTOR [Concomitant]
     Active Substance: ROSUVASTATIN CALCIUM

REACTIONS (2)
  - Psychomotor skills impaired [Recovering/Resolving]
  - Hypoglycaemia [Recovering/Resolving]

NARRATIVE: CASE EVENT DATE: 20140606
